FAERS Safety Report 15678764 (Version 1)
Quarter: 2018Q4

REPORT INFORMATION
  Report Type: Spontaneous
  Country: US (occurrence: US)
  Receive Date: 20181201
  Receipt Date: 20181201
  Transmission Date: 20190205
  Serious: Yes (Disabling)
  Sender: FDA-Public Use
  Company Number: None

PATIENT
  Age: 13 Year
  Sex: Male
  Weight: 31.27 kg

DRUGS (5)
  1. SERTRALINE HYDROCHLORIDE 25MG TABLET [Suspect]
     Active Substance: SERTRALINE HYDROCHLORIDE
     Indication: ATTENTION DEFICIT/HYPERACTIVITY DISORDER
     Dosage: ?          QUANTITY:1 TABLET(S);?
     Route: 048
     Dates: start: 20181028, end: 20181129
  2. MELATONIN [Concomitant]
     Active Substance: MELATONIN
  3. GUANFACINE. [Concomitant]
     Active Substance: GUANFACINE
  4. FOCALIN [Concomitant]
     Active Substance: DEXMETHYLPHENIDATE HYDROCHLORIDE
  5. SERTRALINE HYDROCHLORIDE 25MG TABLET [Suspect]
     Active Substance: SERTRALINE HYDROCHLORIDE
     Indication: AUTISM SPECTRUM DISORDER
     Dosage: ?          QUANTITY:1 TABLET(S);?
     Route: 048
     Dates: start: 20181028, end: 20181129

REACTIONS (3)
  - Aggression [None]
  - Abnormal behaviour [None]
  - Homicidal ideation [None]

NARRATIVE: CASE EVENT DATE: 20181129
